FAERS Safety Report 5425660-8 (Version None)
Quarter: 2007Q3

REPORT INFORMATION
  Report Type: 
  Country: None (occurrence: None)
  Receive Date: 20070726
  Receipt Date: 20070521
  Transmission Date: 20080115
  Serious: No
  Sender: FDA-Public Use
  Company Number: POMP-11067

PATIENT
  Age: 2 Year
  Sex: Female
  Weight: 12.2471 kg

DRUGS (4)
  1. MYOZYME [Suspect]
     Indication: GLYCOGEN STORAGE DISEASE TYPE II
     Dosage: 20 MG Q2WKS; IV
     Route: 042
     Dates: start: 20060501
  2. ALPHA-GLUCOSIDASE (HUMAN, RECOMBINANT, CHO CELLS, GENZYME). MFR: GENZY [Suspect]
     Indication: GLYCOGEN STORAGE DISEASE TYPE II
     Dosage: 20 MG, KG, Q2WKS; IV
     Route: 042
     Dates: start: 20050902, end: 20060501
  3. MOTRIN [Concomitant]
  4. EMLA [Concomitant]

REACTIONS (1)
  - PNEUMONIA [None]
